FAERS Safety Report 9712371 (Version 2)
Quarter: 2013Q4

REPORT INFORMATION
  Report Type: Spontaneous
  Country: US (occurrence: US)
  Receive Date: 20131126
  Receipt Date: 20131126
  Transmission Date: 20140711
  Serious: No
  Sender: FDA-Public Use
  Company Number: US-BRISTOL-MYERS SQUIBB COMPANY-19174994

PATIENT
  Age: 50 Year
  Sex: Female

DRUGS (3)
  1. BYDUREON [Suspect]
     Indication: TYPE 2 DIABETES MELLITUS
     Dates: start: 201301
  2. GLIMEPIRIDE [Concomitant]
     Route: 048
  3. LANTUS [Concomitant]
     Route: 058

REACTIONS (3)
  - Injection site swelling [Recovering/Resolving]
  - Drug administration error [Recovering/Resolving]
  - Product quality issue [Unknown]
